FAERS Safety Report 4450971-2 (Version None)
Quarter: 2004Q3

REPORT INFORMATION
  Report Type: 
  Country: None (occurrence: None)
  Receive Date: 20040916
  Receipt Date: 20040226
  Transmission Date: 20050211
  Serious: Yes (Other)
  Sender: FDA-Public Use
  Company Number: US-BRISTOL-MYERS SQUIBB COMPANY-12518197

PATIENT
  Sex: Female

DRUGS (8)
  1. STADOL [Suspect]
     Dosage: DURATION: MORE THAN 3 YEARS
     Route: 045
  2. STADOL [Suspect]
     Dosage: ROUTE: IM AND IV
     Route: 030
  3. PROMETHAZINE [Concomitant]
  4. BUTALBITAL + CAFFEINE + ACETAMINOPHEN [Concomitant]
  5. CARISOPRODOL [Concomitant]
  6. DIAZEPAM [Concomitant]
  7. FUROSEMIDE [Concomitant]
  8. VASOTEC [Concomitant]

REACTIONS (3)
  - DEPENDENCE [None]
  - DRUG WITHDRAWAL SYNDROME [None]
  - SUICIDAL IDEATION [None]
